FAERS Safety Report 8082418-1 (Version None)
Quarter: 2012Q1

REPORT INFORMATION
  Report Type: 
  Country: None (occurrence: None)
  Receive Date: 20120127
  Receipt Date: 20110218
  Transmission Date: 20120608
  Serious: No
  Sender: FDA-Public Use
  Company Number: US-ABBOTT-11P-163-0706245-00

PATIENT
  Age: 53 Year
  Sex: Female

DRUGS (6)
  1. CYMBALTA [Concomitant]
     Indication: PRODUCT USED FOR UNKNOWN INDICATION
  2. HUMIRA [Suspect]
     Indication: RHEUMATOID ARTHRITIS
     Dates: start: 20110219
  3. METHOTREXATE [Concomitant]
     Indication: PRODUCT USED FOR UNKNOWN INDICATION
     Dosage: 8 EVERY WEEK
  4. FOLIC ACID [Concomitant]
     Indication: PRODUCT USED FOR UNKNOWN INDICATION
  5. VITAMIN D [Concomitant]
     Indication: PRODUCT USED FOR UNKNOWN INDICATION
  6. PREDNISONE TAB [Concomitant]
     Indication: ARTHRITIS

REACTIONS (3)
  - FEELING ABNORMAL [None]
  - MOBILITY DECREASED [None]
  - FATIGUE [None]
